FAERS Safety Report 18355394 (Version 1)
Quarter: 2020Q4

REPORT INFORMATION
  Report Type: Spontaneous
  Country: US (occurrence: US)
  Receive Date: 20201007
  Receipt Date: 20201007
  Transmission Date: 20210114
  Serious: Yes (Life-Threatening, Hospitalization)
  Sender: FDA-Public Use
  Company Number: None

PATIENT
  Age: 71 Year
  Sex: Male
  Weight: 69.85 kg

DRUGS (2)
  1. ENOXAPARIN (ENOXAPARIN 40MG/0.4ML) [Suspect]
     Active Substance: ENOXAPARIN SODIUM
     Indication: THROMBOSIS PROPHYLAXIS
     Route: 058
     Dates: start: 20200915, end: 20200929
  2. CLOPIDOGREL (CLOPIDOGREL BISULFATE 75MG TAB) [Suspect]
     Active Substance: CLOPIDOGREL BISULFATE
     Indication: VASCULAR DEVICE USER
     Route: 048
     Dates: start: 20190708, end: 20190929

REACTIONS (3)
  - Retroperitoneal haemorrhage [None]
  - Pericardial haemorrhage [None]
  - Transfusion [None]

NARRATIVE: CASE EVENT DATE: 20200929
